FAERS Safety Report 8922789 (Version 1)
Quarter: 2012Q4

REPORT INFORMATION
  Report Type: 
  Country: US (occurrence: US)
  Receive Date: 20121123
  Receipt Date: 20121123
  Transmission Date: 20130627
  Serious: Yes (Other)
  Sender: FDA-Public Use
  Company Number: US-JNJFOC-20121109916

PATIENT
  Age: 48 Year
  Sex: Male

DRUGS (4)
  1. REMICADE [Suspect]
     Indication: PSORIATIC ARTHROPATHY
     Route: 042
     Dates: start: 2012, end: 2012
  2. REMICADE [Suspect]
     Indication: PSORIATIC ARTHROPATHY
     Route: 042
     Dates: start: 2012
  3. REMICADE [Suspect]
     Indication: PSORIASIS
     Route: 042
     Dates: start: 2012
  4. REMICADE [Suspect]
     Indication: PSORIASIS
     Route: 042
     Dates: start: 2012, end: 2012

REACTIONS (4)
  - Arthralgia [Not Recovered/Not Resolved]
  - Increased tendency to bruise [Not Recovered/Not Resolved]
  - Oropharyngeal pain [Not Recovered/Not Resolved]
  - Dysphagia [Not Recovered/Not Resolved]
